FAERS Safety Report 19456380 (Version 1)
Quarter: 2021Q2

REPORT INFORMATION
  Report Type: Spontaneous
  Country: US (occurrence: US)
  Receive Date: 20210624
  Receipt Date: 20210624
  Transmission Date: 20210717
  Serious: No
  Sender: FDA-Public Use
  Company Number: US-JNJFOC-20210619247

PATIENT
  Age: 54 Year
  Sex: Female
  Weight: 45 kg

DRUGS (1)
  1. WOMENS ROGAINE UNSCENTED [Suspect]
     Active Substance: MINOXIDIL
     Indication: ALOPECIA
     Dosage: CAP FULL ONCE A DAY; DATE OF LAST ADMINISTRATION: 08/JUN/2021
     Route: 061
     Dates: start: 2021

REACTIONS (3)
  - Rash [Unknown]
  - Overdose [Unknown]
  - Ephelides [Unknown]

NARRATIVE: CASE EVENT DATE: 2021
